FAERS Safety Report 20692711 (Version 2)
Quarter: 2022Q2

REPORT INFORMATION
  Report Type: Spontaneous
  Country: IT (occurrence: IT)
  Receive Date: 20220409
  Receipt Date: 20220428
  Transmission Date: 20220721
  Serious: Yes (Other)
  Sender: FDA-Public Use
  Company Number: IT-AMGEN-ITASP2022057689

PATIENT

DRUGS (3)
  1. ADALIMUMAB [Suspect]
     Active Substance: ADALIMUMAB
     Indication: Rheumatoid arthritis
     Dosage: UNK
     Route: 065
  2. ADALIMUMAB [Suspect]
     Active Substance: ADALIMUMAB
     Indication: Psoriatic arthropathy
  3. ADALIMUMAB [Suspect]
     Active Substance: ADALIMUMAB
     Indication: Spondylitis

REACTIONS (12)
  - Nervous system disorder [Unknown]
  - Prostate cancer [Unknown]
  - Infection [Unknown]
  - Neoplasm [Unknown]
  - Malignant melanoma [Unknown]
  - Uterine cancer [Unknown]
  - Systemic lupus erythematosus [Unknown]
  - Therapeutic product effect decreased [Unknown]
  - Skin reaction [Unknown]
  - Drug ineffective [Unknown]
  - Alopecia [Unknown]
  - Injection site reaction [Unknown]
